FAERS Safety Report 23653542 (Version 2)
Quarter: 2024Q2

REPORT INFORMATION
  Report Type: Spontaneous
  Country: US (occurrence: US)
  Receive Date: 20240320
  Receipt Date: 20240426
  Transmission Date: 20240715
  Serious: No
  Sender: FDA-Public Use
  Company Number: US-PFIZER INC-202400052193

PATIENT
  Age: 80 Year
  Sex: Female

DRUGS (1)
  1. ESTRING [Suspect]
     Active Substance: ESTRADIOL
     Dosage: UNK
     Route: 067
     Dates: start: 20240220

REACTIONS (4)
  - Vulvovaginal discomfort [Unknown]
  - Vulvovaginal burning sensation [Unknown]
  - Device physical property issue [Unknown]
  - Device difficult to use [Unknown]
